FAERS Safety Report 5581756-1 (Version None)
Quarter: 2008Q1

REPORT INFORMATION
  Report Type: 
  Country: None (occurrence: None)
  Receive Date: 20080104
  Receipt Date: 20071227
  Transmission Date: 20080703
  Serious: Yes (Hospitalization, Other)
  Sender: FDA-Public Use
  Company Number: JP-PFIZER INC-2007089902

PATIENT
  Age: 67 Year
  Sex: Female

DRUGS (6)
  1. CELECOX [Suspect]
     Route: 048
  2. VOLTAREN [Suspect]
  3. ALENDRONATE SODIUM [Suspect]
     Route: 048
     Dates: start: 20070718, end: 20071013
  4. TAKEPRON [Concomitant]
  5. LECTISOL [Concomitant]
  6. NEORAL [Concomitant]

REACTIONS (3)
  - DISSEMINATED INTRAVASCULAR COAGULATION [None]
  - GASTRIC PERFORATION [None]
  - GASTRIC ULCER [None]
